FAERS Safety Report 7584749-8 (Version None)
Quarter: 2011Q2

REPORT INFORMATION
  Report Type: 
  Country: None (occurrence: None)
  Receive Date: 20110630
  Receipt Date: 20110620
  Transmission Date: 20111010
  Serious: Yes (Other)
  Sender: FDA-Public Use
  Company Number: PHHY2011US55293

PATIENT
  Age: 51 Year
  Sex: Male
  Weight: 113.38 kg

DRUGS (3)
  1. GLEEVEC [Suspect]
     Indication: ILL-DEFINED DISORDER
     Dosage: 400 MG DAILY
     Route: 048
     Dates: start: 20100801
  2. DEMEROL [Concomitant]
     Indication: PAIN
     Dosage: UNK
  3. NEXIUM [Concomitant]
     Dosage: UNK

REACTIONS (2)
  - DISEASE RECURRENCE [None]
  - NEPHROLITHIASIS [None]
